FAERS Safety Report 16827192 (Version 1)
Quarter: 2019Q3

REPORT INFORMATION
  Report Type: Report from Study
  Country: None (occurrence: TN)
  Receive Date: 20190919
  Receipt Date: 20190919
  Transmission Date: 20191005
  Serious: Yes (Hospitalization)
  Sender: FDA-Public Use
  Company Number: TN-ABBVIE-19K-160-2924201-00

PATIENT
  Sex: Male

DRUGS (8)
  1. HUMIRA [Suspect]
     Active Substance: ADALIMUMAB
     Dosage: 80 MG LOADING DOSE
     Route: 058
     Dates: start: 20170901, end: 20170901
  2. HUMIRA [Suspect]
     Active Substance: ADALIMUMAB
     Route: 058
     Dates: start: 20170915, end: 20171027
  3. IMUREL [Suspect]
     Active Substance: AZATHIOPRINE SODIUM
     Indication: CROHN^S DISEASE
     Route: 065
     Dates: start: 2014, end: 2017
  4. HUMIRA [Suspect]
     Active Substance: ADALIMUMAB
     Indication: CROHN^S DISEASE
     Dosage: 160 MG LOADING DOSE
     Route: 058
     Dates: start: 20170818, end: 20170818
  5. NEOMIXEN [Concomitant]
     Active Substance: NEOMYCIN SULFATE
     Indication: GASTROINTESTINAL INFECTION
     Dates: start: 20171028, end: 20171031
  6. HUMIRA [Suspect]
     Active Substance: ADALIMUMAB
     Dosage: END OF 2017 APPROXIMATELY
     Route: 058
     Dates: start: 20171110, end: 2017
  7. IMUREL [Suspect]
     Active Substance: AZATHIOPRINE SODIUM
     Route: 065
     Dates: start: 2017
  8. PENTASA [Concomitant]
     Active Substance: MESALAMINE
     Indication: HAEMATOCHEZIA
     Dates: start: 20171028, end: 20171101

REACTIONS (4)
  - Anal fistula [Recovered/Resolved]
  - Acne [Not Recovered/Not Resolved]
  - Drug ineffective [Not Recovered/Not Resolved]
  - Pruritus [Not Recovered/Not Resolved]

NARRATIVE: CASE EVENT DATE: 2017
